FAERS Safety Report 14076201 (Version 1)
Quarter: 2017Q4

REPORT INFORMATION
  Report Type: Spontaneous
  Country: US (occurrence: US)
  Receive Date: 20171010
  Receipt Date: 20171010
  Transmission Date: 20180321
  Serious: No
  Sender: FDA-Public Use
  Company Number: US-MYLANLABS-2017M1006800

PATIENT
  Age: 52 Year
  Sex: Female
  Weight: 58.5 kg

DRUGS (2)
  1. TAMOXIFEN [Suspect]
     Active Substance: TAMOXIFEN
     Indication: BREAST CANCER
     Dosage: 20 MG, QD
     Route: 048
     Dates: start: 201601, end: 201603
  2. TAMOXIFEN [Suspect]
     Active Substance: TAMOXIFEN
     Dosage: 10 MG, QD
     Route: 048
     Dates: start: 201603, end: 201604

REACTIONS (1)
  - Pelvic pain [Recovered/Resolved]

NARRATIVE: CASE EVENT DATE: 201603
